FAERS Safety Report 4517134-3 (Version None)
Quarter: 2004Q4

REPORT INFORMATION
  Report Type: 
  Country: None (occurrence: None)
  Receive Date: 20041007
  Receipt Date: 20040727
  Transmission Date: 20050328
  Serious: Yes (Hospitalization)
  Sender: FDA-Public Use
  Company Number: 233653K04USA

PATIENT
  Age: 45 Year
  Sex: Male

DRUGS (1)
  1. REBIF [Suspect]
     Indication: MULTIPLE SCLEROSIS
     Dates: start: 20030313

REACTIONS (8)
  - ANXIETY [None]
  - COORDINATION ABNORMAL [None]
  - DEPRESSION [None]
  - DIFFICULTY IN WALKING [None]
  - GAIT DISTURBANCE [None]
  - PARAESTHESIA [None]
  - SUICIDE ATTEMPT [None]
  - VISUAL DISTURBANCE [None]
